FAERS Safety Report 5653914-9 (Version None)
Quarter: 2008Q1

REPORT INFORMATION
  Report Type: 
  Country: None (occurrence: None)
  Receive Date: 20080306
  Receipt Date: 20080225
  Transmission Date: 20080703
  Serious: Yes (Death, Hospitalization, Other)
  Sender: FDA-Public Use
  Company Number: US-PFIZER INC-2006151028

PATIENT
  Sex: Female
  Weight: 86 kg

DRUGS (20)
  1. CELEBREX [Suspect]
     Indication: PAIN
  2. BEXTRA [Suspect]
     Indication: PAIN
     Dates: start: 20030101
  3. VIOXX [Suspect]
     Indication: PAIN
     Route: 048
  4. CYCLOBENZAPRINE HCL [Concomitant]
     Indication: PAIN
  5. DAYPRO [Concomitant]
     Indication: PAIN
     Dates: start: 20010201
  6. DICLOFENAC SODIUM [Concomitant]
     Indication: PAIN
  7. HYDROCODONE BITARTRATE + ACETAMINOPHEN [Concomitant]
     Indication: PAIN
  8. IBUPROFEN [Concomitant]
     Indication: PAIN
     Dates: start: 20030214
  9. ISOSORBIDE DINITRATE [Concomitant]
     Indication: HYPERTENSION
     Dates: start: 20030222
  10. METHADONE HCL [Concomitant]
     Indication: PAIN
  11. NABUMETONE [Concomitant]
     Indication: PAIN
  12. NAPROXEN [Concomitant]
     Indication: PAIN
  13. NEURONTIN [Concomitant]
     Indication: PAIN
  14. NORCO [Concomitant]
     Indication: PAIN
  15. OXYCODONE HYDROCHLORIDE W/PARACETAMOL [Concomitant]
     Indication: PAIN
  16. PROPOXYPHENE NAPSYLATE W/ ACETAMINOPHEN [Concomitant]
     Indication: PAIN
  17. SKELAXIN [Concomitant]
     Indication: PAIN
  18. TIZANIDINE HCL [Concomitant]
     Indication: PAIN
  19. TRAMADOL HCL [Concomitant]
     Indication: PAIN
     Dates: start: 20030124
  20. ULTRAM [Concomitant]
     Indication: PAIN

REACTIONS (4)
  - CARDIAC FAILURE CONGESTIVE [None]
  - CEREBROVASCULAR ACCIDENT [None]
  - DYSPHAGIA [None]
  - MYOCARDIAL INFARCTION [None]
